FAERS Safety Report 12406289 (Version 1)
Quarter: 2016Q2

REPORT INFORMATION
  Report Type: Spontaneous
  Country: US (occurrence: None)
  Receive Date: 20160525
  Receipt Date: 20160525
  Transmission Date: 20160815
  Serious: No
  Sender: FDA-Public Use
  Company Number: None

PATIENT
  Age: 62 Year
  Sex: Male

DRUGS (2)
  1. SOVALDI [Concomitant]
     Active Substance: SOFOSBUVIR
  2. RIBAVIRIN TAB 200MG [Suspect]
     Active Substance: RIBAVIRIN
     Dosage: 3 TABS IN AM 4 TABS IN PM BID ORAL
     Route: 048

REACTIONS (2)
  - Transfusion [None]
  - Coeliac disease [None]

NARRATIVE: CASE EVENT DATE: 20160524
